FAERS Safety Report 7089691-7 (Version None)
Quarter: 2010Q4

REPORT INFORMATION
  Report Type: 
  Country: None (occurrence: None)
  Receive Date: 20101108
  Receipt Date: 20100204
  Transmission Date: 20110411
  Serious: No
  Sender: FDA-Public Use
  Company Number: US-ABBOTT-10P-163-0624694-00

PATIENT
  Sex: Female
  Weight: 86.26 kg

DRUGS (1)
  1. TRICOR [Suspect]
     Indication: BLOOD TRIGLYCERIDES INCREASED
     Dates: start: 20090204

REACTIONS (1)
  - DIARRHOEA [None]
